FAERS Safety Report 12254679 (Version 1)
Quarter: 2016Q2

REPORT INFORMATION
  Report Type: Spontaneous
  Country: US (occurrence: US)
  Receive Date: 20160411
  Receipt Date: 20160411
  Transmission Date: 20160815
  Serious: No
  Sender: FDA-Public Use
  Company Number: US-SA-2015SA208524

PATIENT
  Sex: Female

DRUGS (1)
  1. ALLEGRA-D [Suspect]
     Active Substance: FEXOFENADINE\PSEUDOEPHEDRINE
     Route: 048

REACTIONS (7)
  - Oropharyngeal pain [Unknown]
  - Mood altered [Unknown]
  - Cough [Unknown]
  - Erythema [Unknown]
  - Rash macular [Unknown]
  - Decreased appetite [Unknown]
  - Nausea [Unknown]
